FAERS Safety Report 8779546 (Version 3)
Quarter: 2013Q1

REPORT INFORMATION
  Report Type: Report from Study
  Country: FR (occurrence: FR)
  Receive Date: 20120912
  Receipt Date: 20130312
  Transmission Date: 20140127
  Serious: Yes (Other)
  Sender: FDA-Public Use
  Company Number: FR-ROCHE-1076667

PATIENT
  Sex: 0

DRUGS (8)
  1. RITUXIMAB [Suspect]
     Indication: B-CELL LYMPHOMA
     Route: 065
  2. LENALIDOMIDE [Suspect]
     Indication: B-CELL LYMPHOMA
     Dosage: DOSE ESCALATED FROM 20 MG TO 25 MG
     Route: 065
  3. CYCLOPHOSPHAMIDE [Suspect]
     Indication: B-CELL LYMPHOMA
     Route: 065
  4. VINCRISTINE [Suspect]
     Indication: B-CELL LYMPHOMA
     Dosage: UP TO A MAXIMAL DOSE OF 2 MG, IN 50 TO 100 ML NORMAL SALINE IN 10 TO 20 MIN I.V. INFUSION
     Route: 042
  5. PREDNISOLONE [Suspect]
     Indication: B-CELL LYMPHOMA
     Dosage: ON DAYS 1 THROUGH 5
     Route: 065
  6. DOXORUBICIN HYDROCHLORIDE [Suspect]
     Indication: B-CELL LYMPHOMA
     Route: 065
  7. PEGFILGRASTIM [Concomitant]
     Dosage: ON DAY 4 OF EACH CYCLE
     Route: 065
  8. ASPIRIN [Concomitant]
     Route: 065

REACTIONS (15)
  - Neutropenia [Unknown]
  - Thrombocytopenia [Unknown]
  - Febrile neutropenia [Unknown]
  - Pulmonary embolism [Recovered/Resolved]
  - Deep vein thrombosis [Unknown]
  - Anaemia [Unknown]
  - Infection [Unknown]
  - Aspartate aminotransferase increased [Unknown]
  - Alanine aminotransferase increased [Unknown]
  - Hypokalaemia [Unknown]
  - Lymphopenia [Unknown]
  - Catheter site haemorrhage [Unknown]
  - Hyponatraemia [Unknown]
  - Hyperglycaemia [Unknown]
  - Hyperuricaemia [Unknown]
